FAERS Safety Report 7406647-2 (Version None)
Quarter: 2011Q2

REPORT INFORMATION
  Report Type: 
  Country: None (occurrence: None)
  Receive Date: 20110411
  Receipt Date: 20110330
  Transmission Date: 20111010
  Serious: Yes (Hospitalization)
  Sender: FDA-Public Use
  Company Number: FR-BRISTOL-MYERS SQUIBB COMPANY-15661549

PATIENT
  Age: 77 Year
  Sex: Female

DRUGS (6)
  1. LANTUS [Concomitant]
     Indication: TYPE 1 DIABETES MELLITUS
     Route: 042
  2. HYZAAR [Concomitant]
     Indication: HYPERTENSION
     Dosage: 1DF = 50MG/12.5MG
     Route: 048
     Dates: end: 20110206
  3. AMLODIPINE BESYLATE [Concomitant]
     Indication: HYPERTENSION
     Dosage: TABLET
     Route: 048
  4. GLYBURIDE [Concomitant]
     Indication: TYPE 1 DIABETES MELLITUS
     Route: 048
     Dates: end: 20110206
  5. GLUCOPHAGE [Suspect]
     Indication: TYPE 1 DIABETES MELLITUS
     Route: 048
     Dates: end: 20110206
  6. CELECTOL [Concomitant]
     Indication: HYPERTENSION

REACTIONS (2)
  - RENAL FAILURE ACUTE [None]
  - METABOLIC ACIDOSIS [None]
